FAERS Safety Report 6188827-X (Version None)
Quarter: 2009Q2

REPORT INFORMATION
  Report Type: 
  Country: None (occurrence: None)
  Receive Date: 20090513
  Receipt Date: 20090112
  Transmission Date: 20091009
  Serious: Yes (Other)
  Sender: FDA-Public Use
  Company Number: FR-PFIZER INC-2009211001

PATIENT
  Age: 62 Year

DRUGS (1)
  1. ATARAX [Suspect]
     Indication: PREMEDICATION
     Dosage: 100 MG, 3X/DAY
     Route: 048
     Dates: start: 20080401, end: 20080401

REACTIONS (1)
  - GLAUCOMA [None]
